FAERS Safety Report 15487969 (Version 5)
Quarter: 2019Q2

REPORT INFORMATION
  Report Type: Spontaneous
  Country: US (occurrence: US)
  Receive Date: 20181011
  Receipt Date: 20190614
  Transmission Date: 20190711
  Serious: Yes (Hospitalization, Other)
  Sender: FDA-Public Use
  Company Number: US-SA-2018SA280038

PATIENT
  Age: 76 Year
  Sex: Female

DRUGS (1)
  1. PRALUENT [Suspect]
     Active Substance: ALIROCUMAB
     Indication: PRODUCT USED FOR UNKNOWN INDICATION
     Dosage: 75 MG, QOW
     Route: 058
     Dates: start: 201809

REACTIONS (4)
  - Thrombosis [Unknown]
  - Cardiac disorder [Unknown]
  - Dyspnoea [Unknown]
  - Oropharyngeal pain [Unknown]
